FAERS Safety Report 6642669-7 (Version None)
Quarter: 2010Q1

REPORT INFORMATION
  Report Type: 
  Country: None (occurrence: None)
  Receive Date: 20100319
  Receipt Date: 20100312
  Transmission Date: 20100710
  Serious: Yes (Congenital Anomaly)
  Sender: FDA-Public Use
  Company Number: IE-ASTRAZENECA-2010SE11012

PATIENT
  Age: 0 Week

DRUGS (3)
  1. SEROQUEL [Suspect]
     Route: 064
  2. LEXAPRO [Concomitant]
  3. ANTIBIOTICS [Concomitant]

REACTIONS (1)
  - TALIPES [None]
